FAERS Safety Report 8361339-0 (Version None)
Quarter: 2012Q2

REPORT INFORMATION
  Report Type: 
  Country: None (occurrence: None)
  Receive Date: 20120515
  Receipt Date: 20120509
  Transmission Date: 20120825
  Serious: Yes (Hospitalization, Other)
  Sender: FDA-Public Use
  Company Number: PHHY2012GB039896

PATIENT
  Age: 75 Year
  Sex: Male

DRUGS (2)
  1. BUMETANIDE [Suspect]
  2. BISOPROLOL FUMARATE [Suspect]
     Route: 048
     Dates: start: 20120229

REACTIONS (5)
  - CHEST PAIN [None]
  - LETHARGY [None]
  - DIARRHOEA [None]
  - WRONG DRUG ADMINISTERED [None]
  - DYSPNOEA [None]
